FAERS Safety Report 8869710 (Version 4)
Quarter: 2013Q1

REPORT INFORMATION
  Report Type: Report from Study
  Country: GB (occurrence: GB)
  Receive Date: 20121028
  Receipt Date: 20130122
  Transmission Date: 20140127
  Serious: Yes (Hospitalization)
  Sender: FDA-Public Use
  Company Number: GB-JNJFOC-20121009620

PATIENT
  Age: 78 Year
  Sex: Male

DRUGS (35)
  1. ABIRATERONE ACETATE [Suspect]
     Route: 048
  2. ABIRATERONE ACETATE [Suspect]
     Indication: PROSTATE CANCER METASTATIC
     Route: 048
     Dates: start: 20120919, end: 201212
  3. PREDNISOLONE [Suspect]
     Indication: PROSTATE CANCER METASTATIC
     Route: 048
     Dates: start: 20100330
  4. SOLIFENACIN SUCCINATE [Concomitant]
     Indication: BLADDER OBSTRUCTION
     Route: 048
     Dates: start: 20100914
  5. GOSERELIN [Concomitant]
     Indication: PROSTATE CANCER
     Route: 058
     Dates: start: 200407
  6. METFORMIN [Concomitant]
     Indication: DIABETES MELLITUS
     Route: 048
     Dates: start: 200507
  7. GLICLAZIDE [Concomitant]
     Indication: DIABETES MELLITUS
     Route: 048
     Dates: start: 200904
  8. OMEPRAZOLE [Concomitant]
     Indication: GASTROOESOPHAGEAL REFLUX PROPHYLAXIS
     Route: 048
     Dates: start: 200601
  9. RAMIPRIL [Concomitant]
     Indication: HYPERTENSION
     Route: 048
     Dates: start: 200507
  10. CANDESARTAN [Concomitant]
     Indication: HYPERTENSION
     Route: 048
     Dates: start: 200809
  11. PARACETAMOL [Concomitant]
     Indication: PAIN PROPHYLAXIS
     Route: 048
     Dates: start: 201001
  12. PARACETAMOL [Concomitant]
     Indication: PAIN PROPHYLAXIS
     Route: 048
  13. PARACETAMOL [Concomitant]
     Indication: PAIN PROPHYLAXIS
     Route: 048
     Dates: start: 20110317
  14. PARACETAMOL [Concomitant]
     Indication: PAIN PROPHYLAXIS
     Route: 048
  15. PARACETAMOL [Concomitant]
     Indication: NECK PAIN
     Route: 048
     Dates: start: 20110317
  16. PARACETAMOL [Concomitant]
     Indication: NECK PAIN
     Route: 048
  17. PARACETAMOL [Concomitant]
     Indication: NECK PAIN
     Route: 048
  18. PARACETAMOL [Concomitant]
     Indication: NECK PAIN
     Route: 048
     Dates: start: 201001
  19. PARACETAMOL [Concomitant]
     Indication: MUSCULOSKELETAL PAIN
     Route: 048
  20. PARACETAMOL [Concomitant]
     Indication: MUSCULOSKELETAL PAIN
     Route: 048
     Dates: start: 201001
  21. PARACETAMOL [Concomitant]
     Indication: MUSCULOSKELETAL PAIN
     Route: 048
     Dates: start: 20110317
  22. PARACETAMOL [Concomitant]
     Indication: MUSCULOSKELETAL PAIN
     Route: 048
  23. PARACETAMOL [Concomitant]
     Indication: ARTHRALGIA
     Route: 048
  24. PARACETAMOL [Concomitant]
     Indication: ARTHRALGIA
     Route: 048
     Dates: start: 20110317
  25. PARACETAMOL [Concomitant]
     Indication: ARTHRALGIA
     Route: 048
  26. PARACETAMOL [Concomitant]
     Indication: ARTHRALGIA
     Route: 048
     Dates: start: 201001
  27. ATORVASTATIN [Concomitant]
     Indication: PROPHYLAXIS
     Route: 048
     Dates: start: 200611
  28. FUROSEMIDE [Concomitant]
     Indication: OEDEMA PERIPHERAL
     Route: 048
     Dates: start: 200507, end: 201012
  29. FUROSEMIDE [Concomitant]
     Indication: OEDEMA PERIPHERAL
     Route: 048
     Dates: start: 201012
  30. FUROSEMIDE [Concomitant]
     Indication: HYPERTENSION
     Route: 048
     Dates: start: 200507, end: 201012
  31. FUROSEMIDE [Concomitant]
     Indication: HYPERTENSION
     Route: 048
     Dates: start: 201012
  32. COCODAMOL [Concomitant]
     Indication: ARTHRALGIA
     Dosage: STRENGTH: 8/500
     Route: 048
     Dates: start: 201010
  33. CETRIZINE [Concomitant]
     Indication: SEASONAL ALLERGY
     Route: 048
     Dates: start: 20100521, end: 201009
  34. CETRIZINE [Concomitant]
     Indication: SEASONAL ALLERGY
     Route: 048
     Dates: start: 201103
  35. AMLODIPINE [Concomitant]
     Indication: HYPERTENSION
     Route: 048
     Dates: start: 201110

REACTIONS (1)
  - Haematuria [Recovered/Resolved]
